FAERS Safety Report 6217037-2 (Version None)
Quarter: 2009Q2

REPORT INFORMATION
  Report Type: 
  Country: None (occurrence: None)
  Receive Date: 20090604
  Receipt Date: 20090603
  Transmission Date: 20091009
  Serious: Yes (Hospitalization)
  Sender: FDA-Public Use
  Company Number: 2009SP011903

PATIENT
  Age: 57 Year
  Sex: Female

DRUGS (3)
  1. BETAMETHASONE/DEXCHLORPHENIRAMINE MALEATE (S-P) (BETAMETHASONE/DEXCHLO [Suspect]
     Indication: DRUG USE FOR UNKNOWN INDICATION
     Dosage: ; PO
     Route: 048
  2. IBUPROFEN [Concomitant]
  3. TOSUFLOXACIN [Concomitant]

REACTIONS (4)
  - BLOOD PRESSURE DIASTOLIC INCREASED [None]
  - ERYTHEMA [None]
  - EYELID OEDEMA [None]
  - RASH PRURITIC [None]
